FAERS Safety Report 6234267-4 (Version None)
Quarter: 2009Q2

REPORT INFORMATION
  Report Type: 
  Country: None (occurrence: None)
  Receive Date: 20090612
  Receipt Date: 20090602
  Transmission Date: 20091009
  Serious: Yes (Death, Life-Threatening, Hospitalization)
  Sender: FDA-Public Use
  Company Number: 2008-181896-NL

PATIENT
  Sex: Female

DRUGS (1)
  1. FOLLITROPIN BETA [Suspect]
     Indication: OVULATION INDUCTION

REACTIONS (4)
  - BACTERIAL SEPSIS [None]
  - CAESAREAN SECTION [None]
  - PREMATURE BABY [None]
  - SEPSIS NEONATAL [None]
